FAERS Safety Report 9601409 (Version 5)
Quarter: 2013Q4

REPORT INFORMATION
  Report Type: Spontaneous
  Country: US (occurrence: US)
  Receive Date: 20131007
  Receipt Date: 20131209
  Transmission Date: 20140711
  Serious: Yes (Hospitalization)
  Sender: FDA-Public Use
  Company Number: US-BIOGENIDEC-2013BI094909

PATIENT
  Age: 45 Year
  Sex: Female

DRUGS (1)
  1. AVONEX [Suspect]
     Indication: MULTIPLE SCLEROSIS
     Route: 030
     Dates: start: 19980101, end: 201303

REACTIONS (11)
  - Incision site abscess [Unknown]
  - Stress fracture [Recovered/Resolved]
  - Arthropathy [Not Recovered/Not Resolved]
  - Hip fracture [Recovered/Resolved]
  - Multiple sclerosis [Not Recovered/Not Resolved]
  - Amnesia [Not Recovered/Not Resolved]
  - Cognitive disorder [Not Recovered/Not Resolved]
  - Road traffic accident [Recovered/Resolved]
  - Paraesthesia [Recovered/Resolved]
  - Pain in extremity [Not Recovered/Not Resolved]
  - Chills [Not Recovered/Not Resolved]
